FAERS Safety Report 7061343-9 (Version None)
Quarter: 2010Q4

REPORT INFORMATION
  Report Type: 
  Country: None (occurrence: None)
  Receive Date: 20101026
  Receipt Date: 20101021
  Transmission Date: 20110411
  Serious: Yes (Other)
  Sender: FDA-Public Use
  Company Number: IT-BRISTOL-MYERS SQUIBB COMPANY-15345911

PATIENT
  Age: 44 Year
  Sex: Female

DRUGS (5)
  1. SUSTIVA [Suspect]
     Dates: start: 20070101, end: 20090401
  2. ATRIPLA [Suspect]
     Dosage: INTERRUPTED ON JUL2009 AND REINTRODUCED 1 DF = 1 TABLET
     Dates: start: 20090401
  3. TRUVADA [Suspect]
     Dates: start: 20070101, end: 20090401
  4. KALETRA [Suspect]
     Dates: start: 20090701, end: 20090101
  5. COMBIVIR [Suspect]
     Dates: start: 20090701, end: 20090101

REACTIONS (3)
  - CAESAREAN SECTION [None]
  - NORMAL NEWBORN [None]
  - PREGNANCY [None]
